FAERS Safety Report 6207097-7 (Version None)
Quarter: 2009Q2

REPORT INFORMATION
  Report Type: 
  Country: None (occurrence: None)
  Receive Date: 20090528
  Receipt Date: 20090519
  Transmission Date: 20091009
  Serious: Yes (Other)
  Sender: FDA-Public Use
  Company Number: US-ELI_LILLY_AND_COMPANY-US200905004375

PATIENT
  Age: 79 Year
  Sex: Male

DRUGS (2)
  1. ALIMTA [Suspect]
     Indication: NON-SMALL CELL LUNG CANCER
     Dosage: 500 MG/M2, UNK
     Route: 042
  2. CORTICOSTEROID NOS [Concomitant]
     Indication: PREMEDICATION

REACTIONS (3)
  - BLOOD GLUCOSE INCREASED [None]
  - RASH [None]
  - UPPER RESPIRATORY TRACT INFECTION [None]
